FAERS Safety Report 8586546-3 (Version None)
Quarter: 2012Q3

REPORT INFORMATION
  Report Type: 
  Country: None (occurrence: None)
  Receive Date: 20120810
  Receipt Date: 20120807
  Transmission Date: 20120928
  Serious: Yes (Life-Threatening, Hospitalization, Disabling, Other)
  Sender: FDA-Public Use
  Company Number: DE-BRISTOL-MYERS SQUIBB COMPANY-16096620

PATIENT
  Age: 55 Year
  Sex: Male
  Weight: 80 kg

DRUGS (16)
  1. CLOPIDOGREL BISULFATE [Concomitant]
     Indication: PERIPHERAL ARTERIAL OCCLUSIVE DISEASE
     Dosage: 1DF:75 UNIT NOS
     Dates: start: 20110903
  2. PANTOPRAZOLE [Concomitant]
     Dosage: 1DF:40 UNIT NOS
  3. DIPIDOLOR [Concomitant]
     Dosage: 1DF:1/4TH AMPOULES
  4. CETUXIMAB [Suspect]
     Indication: NON-SMALL CELL LUNG CANCER
     Dosage: 5MG/ML IS THE STRENGTH.
     Route: 042
     Dates: start: 20110831, end: 20110921
  5. SIMVASTATIN [Concomitant]
     Indication: CARDIOMYOPATHY
     Dosage: 1DF:20 UNIT NOS
  6. ATROVENT [Concomitant]
  7. ALBUTEROL SULFATE [Concomitant]
  8. HEPARIN [Concomitant]
     Indication: CARDIOMYOPATHY
  9. LOSARTAN POTASSIUM [Concomitant]
     Indication: PERIPHERAL ARTERIAL OCCLUSIVE DISEASE
     Dosage: 1DF:50 UNIT NOS
     Dates: start: 20100901
  10. PIPERACILLIN AND TAZOBACTAM [Concomitant]
     Route: 042
  11. GEMCITABINE HYDROCHLORIDE [Suspect]
     Indication: NON-SMALL CELL LUNG CANCER
     Dosage: DAY1 AND DAY 8 OF EACH 3 WEEK CYCLE
     Route: 042
     Dates: start: 20110831, end: 20110831
  12. ASPIRIN [Concomitant]
     Indication: PERIPHERAL ARTERIAL OCCLUSIVE DISEASE
     Dosage: 1DF:100 UNIT NOS
     Dates: start: 20100901
  13. NEBIVOLOL HCL [Concomitant]
     Indication: CARDIOMYOPATHY
     Dosage: 1DF:2.5 UNIT NOS
  14. LASIX [Concomitant]
  15. CISPLATIN [Suspect]
     Indication: NON-SMALL CELL LUNG CANCER
     Route: 042
     Dates: start: 20110831, end: 20110831
  16. NOVALGIN [Concomitant]
     Dosage: 1DF:20 UNIT NOS

REACTIONS (2)
  - ACUTE MYOCARDIAL INFARCTION [None]
  - STRESS CARDIOMYOPATHY [None]
